FAERS Safety Report 17686855 (Version 1)
Quarter: 2020Q2

REPORT INFORMATION
  Report Type: Report from Study
  Country: GB (occurrence: GB)
  Receive Date: 20200421
  Receipt Date: 20200421
  Transmission Date: 20200714
  Serious: Yes (Other)
  Sender: FDA-Public Use
  Company Number: GB-SAMSUNG BIOEPIS-SB-2020-11337

PATIENT
  Age: 44 Year
  Sex: Male

DRUGS (1)
  1. IMRALDI [Suspect]
     Active Substance: ADALIMUMAB
     Indication: ANKYLOSING SPONDYLITIS
     Route: 058
     Dates: start: 20200114

REACTIONS (4)
  - Decreased immune responsiveness [Recovered/Resolved]
  - Wrong technique in product usage process [Not Recovered/Not Resolved]
  - Sleep disorder [Recovered/Resolved]
  - Injection site pain [Unknown]
